FAERS Safety Report 4301628-X (Version None)
Quarter: 2004Q1

REPORT INFORMATION
  Report Type: 
  Country: None (occurrence: None)
  Receive Date: 20040219
  Receipt Date: 20040212
  Transmission Date: 20041129
  Serious: Yes (Other)
  Sender: FDA-Public Use
  Company Number: ENT 2004-0015

PATIENT
  Age: 80 Year
  Sex: Male

DRUGS (4)
  1. COMTAN [Suspect]
     Dosage: 1600 MG (200 MG, 8 IN 1 D)
     Route: 048
     Dates: start: 20020114
  2. SINEMET [Concomitant]
  3. SINEMET [Concomitant]
  4. PRAMIPEXOLE [Concomitant]

REACTIONS (2)
  - DYSPHAGIA [None]
  - SENSATION OF FOREIGN BODY [None]
